FAERS Safety Report 6783570-8 (Version None)
Quarter: 2010Q2

REPORT INFORMATION
  Report Type: 
  Country: None (occurrence: None)
  Receive Date: 20100622
  Receipt Date: 20100609
  Transmission Date: 20101027
  Serious: Yes (Hospitalization)
  Sender: FDA-Public Use
  Company Number: PHHY2010ES38600

PATIENT
  Age: 10 Year
  Sex: Male

DRUGS (4)
  1. METHYLPHENIDATE [Suspect]
     Indication: ATTENTION DEFICIT/HYPERACTIVITY DISORDER
     Dosage: 10 MG, BID
  2. METHYLPHENIDATE [Suspect]
     Dosage: UNK
  3. METHYLPHENIDATE [Suspect]
     Dosage: 30 MG, QD
     Route: 048
  4. METHYLPHENIDATE [Suspect]
     Dosage: UNK

REACTIONS (3)
  - HALLUCINATION, TACTILE [None]
  - HALLUCINATION, VISUAL [None]
  - PRURITUS [None]
